FAERS Safety Report 8035124-3 (Version None)
Quarter: 2012Q1

REPORT INFORMATION
  Report Type: 
  Country: None (occurrence: None)
  Receive Date: 20120111
  Receipt Date: 20120104
  Transmission Date: 20120608
  Serious: Yes (Hospitalization)
  Sender: FDA-Public Use
  Company Number: US-BIOGENIDEC-2011BI046912

PATIENT
  Age: 37 Year
  Sex: Female

DRUGS (1)
  1. AVONEX [Suspect]
     Indication: MULTIPLE SCLEROSIS
     Route: 030
     Dates: start: 20070129

REACTIONS (6)
  - FRACTURED COCCYX [None]
  - ROAD TRAFFIC ACCIDENT [None]
  - PUBIS FRACTURE [None]
  - CEREBRAL HAEMORRHAGE [None]
  - HIP FRACTURE [None]
  - CONCUSSION [None]
